FAERS Safety Report 9016506 (Version 4)
Quarter: 2013Q4

REPORT INFORMATION
  Report Type: Spontaneous
  Country: US (occurrence: US)
  Receive Date: 20130116
  Receipt Date: 20131218
  Transmission Date: 20140711
  Serious: No
  Sender: FDA-Public Use
  Company Number: US-TEVA-377219USA

PATIENT
  Sex: Male

DRUGS (4)
  1. ACTIQ [Suspect]
     Indication: PAIN
     Dosage: 2400 MICROGRAM DAILY;
     Route: 048
     Dates: start: 2000, end: 2011
  2. ADVAIR [Concomitant]
  3. SPIRIVA [Concomitant]
  4. NORCO [Concomitant]
     Indication: PAIN
     Dosage: 10/325 Q4 HOURS PRN

REACTIONS (3)
  - Dental caries [Not Recovered/Not Resolved]
  - Tooth loss [Not Recovered/Not Resolved]
  - Tooth fracture [Not Recovered/Not Resolved]
